FAERS Safety Report 21855895 (Version 3)
Quarter: 2023Q1

REPORT INFORMATION
  Report Type: Report from Study
  Country: CZ (occurrence: CZ)
  Receive Date: 20230112
  Receipt Date: 20230310
  Transmission Date: 20230417
  Serious: Yes (Life-Threatening, Hospitalization, Other)
  Sender: FDA-Public Use
  Company Number: CZ-CELLTRION HEALTHCARE HUNGARY KFT-2022CZ021420

PATIENT
  Age: 59 Year
  Sex: Male
  Weight: 105 kg

DRUGS (14)
  1. RITUXIMAB [Suspect]
     Active Substance: RITUXIMAB
     Indication: Chronic lymphocytic leukaemia
     Dosage: LAST DOSE (CYCLE THREE)
     Dates: start: 20221109
  2. RITUXIMAB [Suspect]
     Active Substance: RITUXIMAB
     Dosage: 1135 MG, CYCLIC
     Route: 065
     Dates: start: 20221004
  3. RITUXIMAB [Suspect]
     Active Substance: RITUXIMAB
     Dosage: 1135 MG, CYCLIC (AT CYCLE 2)
     Route: 065
     Dates: start: 20221101
  4. RITUXIMAB [Suspect]
     Active Substance: RITUXIMAB
     Dosage: LAST DOSE OF RITUXIMAB PRIOR TO ONSET OF SAE
     Dates: start: 20230124
  5. RITUXIMAB [Suspect]
     Active Substance: RITUXIMAB
     Dosage: 835 MG, CYCLIC
     Route: 065
     Dates: start: 20221004
  6. BENDAMUSTINE [Suspect]
     Active Substance: BENDAMUSTINE
     Indication: Chronic lymphocytic leukaemia
     Dosage: 204 MG, CYCLIC
     Route: 065
     Dates: start: 20221004
  7. BENDAMUSTINE [Suspect]
     Active Substance: BENDAMUSTINE
     Dosage: 56.8 MG, CYCLIC
     Route: 065
     Dates: start: 20221004
  8. BENDAMUSTINE [Suspect]
     Active Substance: BENDAMUSTINE
     Dosage: 113 MG, CYCLIC
     Route: 065
     Dates: start: 20221101
  9. BENDAMUSTINE [Suspect]
     Active Substance: BENDAMUSTINE
     Dosage: LAST DOSE (CYCLE THREE)
     Dates: start: 20221130
  10. BENDAMUSTINE [Suspect]
     Active Substance: BENDAMUSTINE
     Dosage: LAST DOSE OF BENDAMUSTONE PRIOR SAE
     Dates: start: 20230125
  11. COTRIMOXAZOLE [Concomitant]
     Active Substance: SULFAMETHOXAZOLE\TRIMETHOPRIM
     Indication: Prophylaxis
     Dosage: UNK
     Dates: start: 20221004
  12. CALCIUM CARBONATE\CALCIUM LACTATE GLUCONATE [Concomitant]
     Active Substance: CALCIUM CARBONATE\CALCIUM LACTATE GLUCONATE
     Indication: Prophylaxis
     Dosage: UNK
  13. ALLOPURINOL [Concomitant]
     Active Substance: ALLOPURINOL
     Indication: Prophylaxis
     Dosage: UNK
     Dates: start: 20220905
  14. ALLOPURINOL [Concomitant]
     Active Substance: ALLOPURINOL
     Indication: Prophylaxis
     Dosage: UNK
     Dates: start: 20220905

REACTIONS (2)
  - Neutropenia [Unknown]
  - COVID-19 pneumonia [Not Recovered/Not Resolved]

NARRATIVE: CASE EVENT DATE: 20221207
